FAERS Safety Report 7784054-0 (Version None)
Quarter: 2011Q3

REPORT INFORMATION
  Report Type: 
  Country: None (occurrence: None)
  Receive Date: 20110928
  Receipt Date: 20110617
  Transmission Date: 20111222
  Serious: No
  Sender: FDA-Public Use
  Company Number: US-BAYER-2011-053497

PATIENT
  Sex: Female
  Weight: 75 kg

DRUGS (10)
  1. ISOSORBIDE DINITRATE [Concomitant]
  2. GLYBURIDE [Concomitant]
  3. ALEVE (CAPLET) [Suspect]
     Indication: ANALGESIC THERAPY
     Dosage: 2 TABLETS ONCE DAILY - 50 COUNT
     Route: 048
  4. METOPROLOL TARTRATE [Concomitant]
  5. METFORMIN HCL [Concomitant]
  6. AMLODIPINE [Concomitant]
  7. LISINOPRIL [Concomitant]
  8. SUGAR PILLS [Concomitant]
  9. LIPITOR [Concomitant]
  10. LEVOTHYROXINE [Concomitant]

REACTIONS (1)
  - THROAT IRRITATION [None]
